FAERS Safety Report 20431377 (Version 1)
Quarter: 2022Q1

REPORT INFORMATION
  Report Type: Report from Study
  Country: US (occurrence: US)
  Receive Date: 20220204
  Receipt Date: 20220204
  Transmission Date: 20220423
  Serious: Yes (Other)
  Sender: FDA-Public Use
  Company Number: US-ALLERGAN-2204322US

PATIENT
  Sex: Female

DRUGS (1)
  1. LINACLOTIDE [Suspect]
     Active Substance: LINACLOTIDE
     Indication: Product used for unknown indication
     Dosage: 145 ?G, QD

REACTIONS (10)
  - Shock [Unknown]
  - Product dose omission issue [Unknown]
  - Pain [Unknown]
  - Haemorrhoids [Unknown]
  - Hyperhidrosis [Unknown]
  - Asthenia [Unknown]
  - Vomiting [Unknown]
  - Dyspepsia [Unknown]
  - Nausea [Unknown]
  - Constipation [Unknown]
